FAERS Safety Report 6673099-X (Version None)
Quarter: 2010Q2

REPORT INFORMATION
  Report Type: 
  Country: None (occurrence: None)
  Receive Date: 20100408
  Receipt Date: 20100407
  Transmission Date: 20101027
  Serious: Yes (Death, Hospitalization, Other)
  Sender: FDA-Public Use
  Company Number: PHHY2010BR13095

PATIENT
  Sex: Male

DRUGS (4)
  1. EXELON [Suspect]
     Indication: DEMENTIA
     Dosage: 3 MG DAILY
     Route: 048
     Dates: start: 20060101
  2. RISPERDAL [Concomitant]
     Dosage: 4 TABLETS AT NIGHT
  3. SERETIDE [Concomitant]
     Indication: DYSPNOEA
     Dosage: UNK
  4. VITAMINS [Concomitant]

REACTIONS (5)
  - ABNORMAL BEHAVIOUR [None]
  - BLOOD PRESSURE INCREASED [None]
  - DEMENTIA [None]
  - INSOMNIA [None]
  - PULMONARY EMBOLISM [None]
